FAERS Safety Report 13510210 (Version 1)
Quarter: 2017Q2

REPORT INFORMATION
  Report Type: Report from Study
  Country: AU (occurrence: AU)
  Receive Date: 20170503
  Receipt Date: 20170503
  Transmission Date: 20170830
  Serious: Yes (Hospitalization)
  Sender: FDA-Public Use
  Company Number: AU-REGENERON PHARMACEUTICALS, INC.-2017-15105

PATIENT

DRUGS (2)
  1. INSULIN [Concomitant]
     Active Substance: INSULIN NOS
     Indication: PRODUCT USED FOR UNKNOWN INDICATION
     Dosage: A SHORT ACTING INSULIN 3 TIMES A DAY AND A LONG ACTING TWICE A DAY
  2. EYLEA [Suspect]
     Active Substance: AFLIBERCEPT
     Indication: DIABETIC RETINAL OEDEMA
     Dosage: EVERY 9 WEEKS ON LEFT EYE
     Dates: start: 20150924

REACTIONS (7)
  - Blood glucose decreased [Recovered/Resolved]
  - Fear of injection [Not Recovered/Not Resolved]
  - Pancreatic disorder [Unknown]
  - Blood glucose increased [Not Recovered/Not Resolved]
  - Foreign body sensation in eyes [Recovered/Resolved]
  - Abdominal pain upper [Unknown]
  - Eye pain [Not Recovered/Not Resolved]

NARRATIVE: CASE EVENT DATE: 2017
